FAERS Safety Report 6572910-0 (Version None)
Quarter: 2010Q1

REPORT INFORMATION
  Report Type: 
  Country: None (occurrence: None)
  Receive Date: 20100207
  Receipt Date: 20100125
  Transmission Date: 20100710
  Serious: Yes (Other)
  Sender: FDA-Public Use
  Company Number: FR-BRISTOL-MYERS SQUIBB COMPANY-14956452

PATIENT
  Sex: Female

DRUGS (1)
  1. ABILIFY [Suspect]
     Indication: DEPERSONALISATION
     Dosage: 24JUL07 STARTED 10MG/D DECREASED TO 5 MG ON 19NOV08
     Dates: start: 20070724, end: 20081124

REACTIONS (5)
  - GESTATIONAL DIABETES [None]
  - INFLUENZA [None]
  - LIVE BIRTH [None]
  - PREGNANCY [None]
  - PREMATURE SEPARATION OF PLACENTA [None]
